FAERS Safety Report 10409483 (Version 1)
Quarter: 2014Q3

REPORT INFORMATION
  Report Type: Spontaneous
  Country: US (occurrence: US)
  Receive Date: 20140826
  Receipt Date: 20140826
  Transmission Date: 20150326
  Serious: No
  Sender: FDA-Public Use
  Company Number: US-BAUSCH-SYM-2014-19911

PATIENT
  Sex: Male

DRUGS (1)
  1. ACYCLOVIR 5% OINTMENT [Suspect]
     Active Substance: ACYCLOVIR
     Indication: SKIN LESION
     Route: 061
     Dates: start: 201403

REACTIONS (2)
  - Application site erythema [Recovered/Resolved]
  - Application site exfoliation [Recovered/Resolved]

NARRATIVE: CASE EVENT DATE: 201403
